FAERS Safety Report 5496671-1 (Version None)
Quarter: 2007Q4

REPORT INFORMATION
  Report Type: 
  Country: None (occurrence: None)
  Receive Date: 20071025
  Receipt Date: 20070724
  Transmission Date: 20080405
  Serious: No
  Sender: FDA-Public Use
  Company Number: A0661019A

PATIENT
  Age: 70 Year
  Sex: Female

DRUGS (4)
  1. ADVAIR DISKUS 100/50 [Suspect]
     Indication: ASTHMA
     Dosage: 1PUFF TWICE PER DAY
     Route: 055
     Dates: start: 20070601
  2. HYDROCHLOROTHIAZIDE [Concomitant]
  3. PREDNISONE [Concomitant]
  4. SPIRIVA [Concomitant]

REACTIONS (4)
  - FATIGUE [None]
  - FLUID RETENTION [None]
  - SOMNOLENCE [None]
  - WEIGHT INCREASED [None]
